FAERS Safety Report 7551154-X (Version None)
Quarter: 2011Q2

REPORT INFORMATION
  Report Type: 
  Country: None (occurrence: None)
  Receive Date: 20110616
  Receipt Date: 20110608
  Transmission Date: 20111010
  Serious: Yes (Other)
  Sender: FDA-Public Use
  Company Number: US-ROXANE LABORATORIES, INC.-2011-RO-00795RO

PATIENT
  Age: 85 Year
  Sex: Female

DRUGS (4)
  1. CROTAMITON [Concomitant]
     Indication: EXCORIATION
  2. RISPERIDONE [Suspect]
     Dosage: 0.5 MG
  3. RISPERIDONE [Suspect]
     Indication: SOMATIC DELUSION
     Dosage: 1 MG
  4. DIPHENHYDRAMINE HCL [Concomitant]
     Indication: EXCORIATION
     Dosage: 25 MG

REACTIONS (2)
  - DRUG INEFFECTIVE [None]
  - TARDIVE DYSKINESIA [None]
